FAERS Safety Report 5297513-X (Version None)
Quarter: 2007Q3

REPORT INFORMATION
  Report Type: 
  Country: None (occurrence: None)
  Receive Date: 20070411
  Receipt Date: 20070411
  Transmission Date: 20080115
  Serious: Yes (Life-Threatening)
  Sender: FDA-Public Use
  Company Number: None

PATIENT
  Age: 50 Year
  Sex: Female
  Weight: 68.0396 kg

DRUGS (2)
  1. PROAIR HFA [Suspect]
     Indication: ASTHMA
     Dosage: 1-2 PUFFS 4-6 HRS
     Dates: start: 20070301
  2. PROAIR HFA [Suspect]
     Indication: HYPERSENSITIVITY
     Dosage: 1-2 PUFFS 4-6 HRS
     Dates: start: 20070301

REACTIONS (5)
  - COUGH [None]
  - DRUG INEFFECTIVE [None]
  - PHARMACEUTICAL PRODUCT COMPLAINT [None]
  - STOMATITIS [None]
  - TONGUE DISORDER [None]
